FAERS Safety Report 7463763-7 (Version None)
Quarter: 2011Q2

REPORT INFORMATION
  Report Type: 
  Country: None (occurrence: None)
  Receive Date: 20110506
  Receipt Date: 20110427
  Transmission Date: 20111010
  Serious: Yes (Hospitalization)
  Sender: FDA-Public Use
  Company Number: JP-B.I. PHARMACEUTICALS,INC./RIDGEFIELD-2011-BP-10841NB

PATIENT
  Sex: Male
  Weight: 67.2 kg

DRUGS (7)
  1. TAMBOCOR [Concomitant]
     Indication: ARRHYTHMIA PROPHYLAXIS
     Dosage: 100 MG
     Route: 048
     Dates: start: 20091217
  2. CARBENIN [Suspect]
     Indication: PNEUMONIA
     Dosage: 1 G
     Route: 042
     Dates: start: 20110404, end: 20110411
  3. MUSOSAL-L [Concomitant]
     Indication: BRONCHITIS CHRONIC
     Dosage: 45 MG
     Route: 048
     Dates: start: 20100708
  4. PRADAXA [Suspect]
     Indication: ATRIAL FIBRILLATION
     Dosage: 300 MG
     Route: 048
     Dates: start: 20110406, end: 20110411
  5. AMLODIN OD [Concomitant]
     Indication: HYPERTENSION
     Dosage: 7.5 MG
     Route: 048
     Dates: start: 20100108
  6. TANATRIL [Concomitant]
     Indication: HYPERTENSION
     Dosage: 5 MG
     Route: 048
     Dates: start: 20100108
  7. CELECTOL [Concomitant]
     Indication: HYPERTENSION
     Dosage: 200 MG
     Route: 048
     Dates: start: 20091222

REACTIONS (2)
  - INTERSTITIAL LUNG DISEASE [None]
  - HAEMOPTYSIS [None]
